FAERS Safety Report 8796268 (Version 2)
Quarter: 2012Q4

REPORT INFORMATION
  Report Type: 
  Country: US (occurrence: US)
  Receive Date: 20120919
  Receipt Date: 20121003
  Transmission Date: 20130627
  Serious: Yes (Other)
  Sender: FDA-Public Use
  Company Number: US-PFIZER INC-2012227504

PATIENT
  Age: 96 Year
  Sex: Female
  Weight: 45.35 kg

DRUGS (4)
  1. TOVIAZ [Suspect]
     Indication: HYPERTONIC BLADDER
     Dosage: 4 mg, 1x/day
     Route: 048
     Dates: start: 20120907, end: 201209
  2. OXYBUTYNIN [Suspect]
     Indication: HYPERTONIC BLADDER
     Dosage: UNK
  3. NAMENDA [Concomitant]
     Indication: DEMENTIA
     Dosage: UNK
  4. CELEXA [Concomitant]
     Indication: DEPRESSION
     Dosage: UNK

REACTIONS (8)
  - Gait disturbance [Unknown]
  - Tremor [Not Recovered/Not Resolved]
  - Confusional state [Unknown]
  - Somnolence [Not Recovered/Not Resolved]
  - Insomnia [Not Recovered/Not Resolved]
  - Constipation [Unknown]
  - Fatigue [Unknown]
  - Drug ineffective [Unknown]
